FAERS Safety Report 19413654 (Version 1)
Quarter: 2021Q2

REPORT INFORMATION
  Report Type: Spontaneous
  Country: FR (occurrence: FR)
  Receive Date: 20210614
  Receipt Date: 20210614
  Transmission Date: 20210717
  Serious: Yes (Other)
  Sender: FDA-Public Use
  Company Number: FR-SA-2021SA189968

PATIENT
  Age: 51 Year
  Sex: Female
  Weight: 61 kg

DRUGS (2)
  1. NASACORT [Suspect]
     Active Substance: TRIAMCINOLONE ACETONIDE
     Indication: NASAL POLYPS
     Dosage: 55 UG PER DOSE
     Dates: start: 2000
  2. LATANOPROST. [Suspect]
     Active Substance: LATANOPROST
     Indication: OCULAR HYPERTENSION
     Dosage: 1 GTT DROPS, QDV (1 DROP IN EACH EYE AT NIGHT MONOPROST 50 MICROGRAMS / ML, EYE DROPS IN SOLUTION IN
     Route: 047
     Dates: start: 20190701

REACTIONS (1)
  - Depression [Not Recovered/Not Resolved]

NARRATIVE: CASE EVENT DATE: 20191113
